FAERS Safety Report 10980407 (Version 5)
Quarter: 2015Q4

REPORT INFORMATION
  Report Type: Spontaneous
  Country: US (occurrence: US)
  Receive Date: 20150402
  Receipt Date: 20151214
  Transmission Date: 20160304
  Serious: No
  Sender: FDA-Public Use
  Company Number: US-JNJFOC-20140208119

PATIENT
  Age: 75 Year
  Sex: Female
  Weight: 99.79 kg

DRUGS (4)
  1. IMODIUM MULTI-SYMPTOM RELIEF [Suspect]
     Active Substance: DIMETHICONE\LOPERAMIDE HYDROCHLORIDE
     Route: 048
  2. CALAMINE [Concomitant]
     Active Substance: CALAMINE\FERRIC OXIDE RED\ZINC OXIDE
     Indication: FREQUENT BOWEL MOVEMENTS
     Route: 065
  3. PSYLLIUM HYDROPHILIC MUCILLOID [Concomitant]
     Active Substance: PSYLLIUM HUSK
     Route: 065
  4. IMODIUM MULTI-SYMPTOM RELIEF [Suspect]
     Active Substance: DIMETHICONE\LOPERAMIDE HYDROCHLORIDE
     Indication: INFREQUENT BOWEL MOVEMENTS
     Route: 048
     Dates: start: 20111231

REACTIONS (5)
  - Intentional product use issue [Unknown]
  - Therapeutic response unexpected [Unknown]
  - Product physical issue [Unknown]
  - Incorrect dose administered [Unknown]
  - Dysphagia [Recovered/Resolved]
